FAERS Safety Report 6497528-X (Version None)
Quarter: 2009Q4

REPORT INFORMATION
  Report Type: 
  Country: None (occurrence: None)
  Receive Date: 20091211
  Receipt Date: 20091127
  Transmission Date: 20100525
  Serious: Yes (Hospitalization)
  Sender: FDA-Public Use
  Company Number: DE-1180005

PATIENT

DRUGS (1)
  1. FLUORESCEIN SODIUM [Suspect]
     Dosage: INTRAVENOUS BOLUS
     Route: 040

REACTIONS (5)
  - ATRIOVENTRICULAR BLOCK FIRST DEGREE [None]
  - CHEST DISCOMFORT [None]
  - HYPERHIDROSIS [None]
  - MYOCARDIAL INFARCTION [None]
  - RECTAL TENESMUS [None]
